FAERS Safety Report 20132598 (Version 1)
Quarter: 2021Q4

REPORT INFORMATION
  Report Type: Spontaneous
  Country: BE (occurrence: BE)
  Receive Date: 20211130
  Receipt Date: 20211130
  Transmission Date: 20220303
  Serious: Yes (Other)
  Sender: FDA-Public Use
  Company Number: BE-009507513-2111BEL008222

PATIENT
  Age: 70 Year
  Sex: Male

DRUGS (1)
  1. KEYTRUDA [Suspect]
     Active Substance: PEMBROLIZUMAB
     Indication: Non-small cell lung cancer
     Dosage: 200 MILLIGRAM, Q3W
     Dates: start: 2021

REACTIONS (8)
  - Autoimmune myositis [Recovered/Resolved]
  - Acute polyneuropathy [Unknown]
  - Electrocardiogram repolarisation abnormality [Unknown]
  - Urinary retention [Unknown]
  - Diabetes mellitus inadequate control [Unknown]
  - Myocarditis [Recovered/Resolved]
  - Bundle branch block [Unknown]
  - Radiculopathy [Unknown]

NARRATIVE: CASE EVENT DATE: 20210101
